FAERS Safety Report 10629880 (Version 1)
Quarter: 2014Q4

REPORT INFORMATION
  Report Type: Spontaneous
  Country: US (occurrence: US)
  Receive Date: 20141205
  Receipt Date: 20141205
  Transmission Date: 20150529
  Serious: No
  Sender: FDA-Public Use
  Company Number: US-BRISTOL-MYERS SQUIBB COMPANY-21421508

PATIENT
  Age: 53 Year
  Sex: Female

DRUGS (15)
  1. TRAMADOL [Concomitant]
     Active Substance: TRAMADOL
  2. IMITREX [Concomitant]
     Active Substance: SUMATRIPTAN\SUMATRIPTAN SUCCINATE
  3. NEXIUM [Concomitant]
     Active Substance: ESOMEPRAZOLE MAGNESIUM
  4. MOBIC [Concomitant]
     Active Substance: MELOXICAM
  5. MAXALT [Concomitant]
     Active Substance: RIZATRIPTAN BENZOATE
  6. ULTRAM [Concomitant]
     Active Substance: TRAMADOL HYDROCHLORIDE
  7. CRESTOR [Concomitant]
     Active Substance: ROSUVASTATIN CALCIUM
  8. VITAMIN D [Concomitant]
     Active Substance: CHOLECALCIFEROL
  9. BUSPAR [Concomitant]
     Active Substance: BUSPIRONE HYDROCHLORIDE
  10. CLONIDINE. [Concomitant]
     Active Substance: CLONIDINE
  11. KLONOPIN [Concomitant]
     Active Substance: CLONAZEPAM
  12. TOPAMAX [Concomitant]
     Active Substance: TOPIRAMATE
  13. BYETTA [Suspect]
     Active Substance: EXENATIDE
     Indication: TYPE 2 DIABETES MELLITUS
     Dosage: INJECTION:?START/STOP: THREE YEARS AGO/EIGHT MONTHS AGO
     Route: 058
     Dates: start: 2011, end: 2014
  14. BYDUREON [Suspect]
     Active Substance: EXENATIDE
  15. ZOLOFT [Concomitant]
     Active Substance: SERTRALINE HYDROCHLORIDE

REACTIONS (2)
  - Drug dose omission [Recovered/Resolved]
  - Injection site reaction [Not Recovered/Not Resolved]
